FAERS Safety Report 14140694 (Version 1)
Quarter: 2017Q4

REPORT INFORMATION
  Report Type: Spontaneous
  Country: US (occurrence: US)
  Receive Date: 20171030
  Receipt Date: 20171030
  Transmission Date: 20180321
  Serious: No
  Sender: FDA-Public Use
  Company Number: US-PFIZER INC-2017465706

PATIENT
  Age: 59 Year
  Sex: Female

DRUGS (1)
  1. IBRANCE [Suspect]
     Active Substance: PALBOCICLIB
     Indication: NEOPLASM MALIGNANT
     Dosage: 125 MG, CYCLIC (EVERY DAY FOR 21 DAYS OF EVERY 28 DAY CYCLE)
     Route: 048
     Dates: start: 201701

REACTIONS (2)
  - Diarrhoea [Recovered/Resolved]
  - Alopecia [Unknown]
